FAERS Safety Report 7501640-3 (Version None)
Quarter: 2011Q2

REPORT INFORMATION
  Report Type: 
  Country: None (occurrence: None)
  Receive Date: 20110524
  Receipt Date: 20110512
  Transmission Date: 20111010
  Serious: Yes (Hospitalization, Other)
  Sender: FDA-Public Use
  Company Number: US-AMGEN-USASP2011024744

PATIENT
  Age: 61 Year
  Sex: Male

DRUGS (1)
  1. ENBREL [Suspect]
     Indication: RHEUMATOID ARTHRITIS
     Dosage: 25 MG, 2 TIMES/WK
     Dates: start: 20000801, end: 20091101

REACTIONS (6)
  - WOUND INFECTION STAPHYLOCOCCAL [None]
  - INTERVERTEBRAL DISC DISORDER [None]
  - WOUND DEHISCENCE [None]
  - IMPAIRED HEALING [None]
  - HYPOAESTHESIA [None]
  - OPEN WOUND [None]
